FAERS Safety Report 4701988-1 (Version None)
Quarter: 2005Q2

REPORT INFORMATION
  Report Type: 
  Country: None (occurrence: None)
  Receive Date: 20050628
  Receipt Date: 20050315
  Transmission Date: 20051028
  Serious: Yes (Hospitalization, Disabling)
  Sender: FDA-Public Use
  Company Number: US-MERCK-0503USA03245

PATIENT
  Age: 27 Year
  Sex: Male
  Weight: 105 kg

DRUGS (3)
  1. VIOXX [Suspect]
     Indication: MONARTHRITIS
     Route: 048
     Dates: start: 19990101, end: 20010101
  2. VIOXX [Suspect]
     Indication: GROIN PAIN
     Route: 048
     Dates: start: 19990101, end: 20010101
  3. PREVACID [Concomitant]
     Route: 065

REACTIONS (13)
  - CHEST PAIN [None]
  - COAGULOPATHY [None]
  - CONVULSION [None]
  - DIABETES MELLITUS NON-INSULIN-DEPENDENT [None]
  - DYSPEPSIA [None]
  - GASTROOESOPHAGEAL REFLUX DISEASE [None]
  - PEPTIC ULCER [None]
  - PULMONARY EMBOLISM [None]
  - RENAL IMPAIRMENT [None]
  - STOMACH DISCOMFORT [None]
  - TESTIS CANCER [None]
  - THROMBOSIS [None]
  - VOMITING [None]
